FAERS Safety Report 20406448 (Version 3)
Quarter: 2022Q3

REPORT INFORMATION
  Report Type: Spontaneous
  Country: US (occurrence: US)
  Receive Date: 20220131
  Receipt Date: 20220928
  Transmission Date: 20221027
  Serious: No
  Sender: FDA-Public Use
  Company Number: US-SA-SAC20220126000345

PATIENT
  Age: 45 Year
  Sex: Male

DRUGS (2)
  1. FABRAZYME [Suspect]
     Active Substance: AGALSIDASE BETA
     Indication: Fabry^s disease
     Dosage: 105 MG, QOW
     Route: 042
     Dates: start: 20210910
  2. FABRAZYME [Suspect]
     Active Substance: AGALSIDASE BETA
     Indication: Mucopolysaccharidosis
     Dosage: 70 MG, QOW
     Route: 042
     Dates: start: 20211109

REACTIONS (4)
  - Drug specific antibody [Unknown]
  - Poor venous access [Unknown]
  - Product dose omission issue [Unknown]
  - Product use in unapproved indication [Unknown]

NARRATIVE: CASE EVENT DATE: 20210910
